FAERS Safety Report 9771753 (Version 4)
Quarter: 2014Q2

REPORT INFORMATION
  Report Type: Report from Study
  Country: FR (occurrence: FR)
  Receive Date: 20131219
  Receipt Date: 20140623
  Transmission Date: 20141212
  Serious: Yes (Life-Threatening, Hospitalization, Other)
  Sender: FDA-Public Use
  Company Number: FR-009507513-1301FRA008761

PATIENT
  Age: 63 Year
  Sex: Male
  Weight: 69 kg

DRUGS (30)
  1. BOCEPREVIR [Suspect]
     Indication: HEPATITIS C
     Dosage: 2400 MG, QD
     Route: 048
     Dates: start: 20121105, end: 20130530
  2. REBETOL [Suspect]
     Indication: HEPATITIS C
     Dosage: 1000 MG, QD
     Route: 048
     Dates: start: 20121009, end: 20130408
  3. REBETOL [Suspect]
     Dosage: 800 MG, QD
     Route: 048
     Dates: start: 20130409, end: 20130418
  4. REBETOL [Suspect]
     Dosage: 600 MG, QD
     Route: 048
     Dates: start: 20130419, end: 20130501
  5. REBETOL [Suspect]
     Dosage: 400 MG, QD
     Route: 048
     Dates: start: 20130502, end: 20130520
  6. REBETOL [Suspect]
     Dosage: 200 MG, QD
     Route: 048
     Dates: start: 20130521, end: 20130530
  7. PEGASYS [Suspect]
     Indication: HEPATITIS C
     Dosage: 180 MICROGRAM, QW
     Dates: start: 20121009, end: 20121203
  8. PEGASYS [Suspect]
     Dosage: 135 MICROGRAM, QW
     Dates: start: 20121204, end: 20121228
  9. PEGASYS [Suspect]
     Dosage: 90 MICROGRAM, QW
     Dates: start: 20121229, end: 20130530
  10. VELMETIA [Concomitant]
     Dosage: UNK
     Dates: start: 1998
  11. KARDEGIC [Concomitant]
     Indication: ISCHAEMIC HEART DISEASE PROPHYLAXIS
     Dosage: 75 MG, QD
     Dates: start: 2004
  12. SECTRAL [Concomitant]
     Indication: ISCHAEMIC HEART DISEASE PROPHYLAXIS
     Dosage: 200 MG, QD
     Dates: start: 2004
  13. SECTRAL [Concomitant]
     Dosage: 200 MG, QD
     Dates: start: 20130625
  14. TRIATEC [Concomitant]
     Indication: ISCHAEMIC HEART DISEASE PROPHYLAXIS
     Dosage: 5 MG, QD
     Dates: start: 2004
  15. PRAVASTATIN SODIUM [Concomitant]
     Indication: ISCHAEMIC HEART DISEASE PROPHYLAXIS
     Dosage: 20 MG, QD
     Dates: start: 2004
  16. INSULIN [Concomitant]
     Indication: DIABETES MELLITUS
     Dosage: UNK
     Dates: start: 1998
  17. GLIMEPIRIDE [Concomitant]
     Indication: DIABETES MELLITUS
     Dosage: UNK
     Dates: start: 1998
  18. METFORMIN [Concomitant]
     Indication: DIABETES MELLITUS
     Dosage: UNK
     Dates: start: 1998
  19. NEORECORMON [Concomitant]
     Indication: PRODUCT USED FOR UNKNOWN INDICATION
     Dosage: 30000 IU, BIW
     Dates: start: 20121107
  20. SOLU-MEDROL [Concomitant]
     Indication: IMMUNOSUPPRESSANT DRUG THERAPY
     Dosage: 20 MG,QD
     Dates: start: 20130531
  21. CELLCEPT [Concomitant]
     Indication: IMMUNOSUPPRESSANT DRUG THERAPY
     Dosage: 250 MG, BID
  22. NEORAL [Concomitant]
     Indication: IMMUNOSUPPRESSANT DRUG THERAPY
     Dosage: 175 MG, QD (100 + 75 MG)
     Dates: start: 20130530
  23. EUPRESSYL [Concomitant]
     Indication: HYPERTENSION
     Dosage: 30 MG, QD
     Dates: start: 20130621
  24. LOXEN [Concomitant]
     Indication: HYPERTENSION
     Dosage: UNK
  25. INIPOMP [Concomitant]
     Indication: PROPHYLAXIS AGAINST GASTROINTESTINAL ULCER
     Dosage: 40 MG, UNK
     Dates: start: 201306
  26. ROVALCYTE [Concomitant]
     Indication: ANTIVIRAL PROPHYLAXIS
     Dosage: 900 MG, QD
     Dates: start: 20130531
  27. MYCAMINE [Concomitant]
     Indication: INFECTION PROPHYLAXIS
  28. ZYVOXID [Concomitant]
     Indication: INFECTION PROPHYLAXIS
  29. BACTRIM [Concomitant]
     Indication: INFECTION PROPHYLAXIS
  30. CORTANCYL [Concomitant]
     Indication: IMMUNOSUPPRESSANT DRUG THERAPY
     Dosage: 5 MG, QD
     Dates: start: 20130530

REACTIONS (8)
  - Haematoma evacuation [Recovered/Resolved]
  - Therapeutic embolisation [Recovered/Resolved]
  - Leukopenia [Recovered/Resolved]
  - Leukopenia [Recovered/Resolved]
  - Pyrexia [Recovered/Resolved]
  - Neutropenia [Recovered/Resolved]
  - Neutropenia [Recovered/Resolved]
  - Liver function test abnormal [Recovered/Resolved]
